FAERS Safety Report 22721267 (Version 2)
Quarter: 2024Q3

REPORT INFORMATION
  Report Type: Spontaneous
  Country: US (occurrence: US)
  Receive Date: 20230719
  Receipt Date: 20240723
  Transmission Date: 20241016
  Serious: No
  Sender: OTSUKA
  Company Number: US-OTSUKA-2023_000861

PATIENT
  Age: 53 Year
  Sex: Female
  Weight: 42.64 kg

DRUGS (4)
  1. REXULTI [Suspect]
     Active Substance: BREXPIPRAZOLE
     Indication: Bipolar disorder
     Dosage: 2 MG
     Route: 065
  2. REXULTI [Suspect]
     Active Substance: BREXPIPRAZOLE
     Indication: Depression
  3. REXULTI [Suspect]
     Active Substance: BREXPIPRAZOLE
     Indication: Mania
  4. LAMICTAL [Concomitant]
     Active Substance: LAMOTRIGINE
     Indication: Product used for unknown indication
     Dosage: 200 MG, QD
     Route: 065

REACTIONS (9)
  - Withdrawal syndrome [Unknown]
  - Chills [Unknown]
  - Weight abnormal [Unknown]
  - Depression [Unknown]
  - Electrocardiogram abnormal [Unknown]
  - Nausea [Unknown]
  - Product use in unapproved indication [Unknown]
  - Product use issue [Unknown]
  - Product availability issue [Unknown]

NARRATIVE: CASE EVENT DATE: 20221230
